FAERS Safety Report 9217965 (Version 6)
Quarter: 2013Q4

REPORT INFORMATION
  Report Type: Report from Study
  Country: AU (occurrence: AU)
  Receive Date: 20130408
  Receipt Date: 20131007
  Transmission Date: 20140711
  Serious: Yes (Hospitalization, Other)
  Sender: FDA-Public Use
  Company Number: PHHY2013AU011685

PATIENT
  Age: 60 Year
  Sex: Female

DRUGS (30)
  1. CLOZARIL [Suspect]
     Indication: SCHIZOPHRENIA
     Dosage: 250 MG, UNK
     Route: 048
     Dates: start: 20081119
  2. CLOZARIL [Suspect]
     Indication: TARDIVE DYSKINESIA
     Dosage: 250 UNK, UNK
     Dates: start: 20110321
  3. CLOZARIL [Suspect]
     Dosage: UNK UKN, UNK
     Dates: start: 20110803
  4. CLOZARIL [Suspect]
     Dosage: 300 MG, UNK
     Dates: start: 20110815
  5. CLOZARIL [Suspect]
     Dosage: UNK UKN, UNK
     Dates: start: 20110818
  6. CLOZARIL [Suspect]
     Dosage: 250 MG, UNK
     Dates: start: 20110930
  7. CLOZARIL [Suspect]
     Dosage: 50/200 MG
     Dates: end: 20130316
  8. CLOZARIL [Suspect]
     Dosage: 150 MG, QD  (50 MG MORNING AND 100 MG NIGHT)
     Route: 048
     Dates: start: 20130318, end: 20130621
  9. CLOZARIL [Suspect]
     Dosage: UNK
     Dates: end: 20130206
  10. CLOZARIL [Suspect]
     Dosage: 225 MG, UNK
     Dates: end: 20130628
  11. CLOZARIL [Suspect]
     Dosage: 100 MG, QHS
     Dates: end: 20130628
  12. CLOZARIL [Suspect]
     Dosage: 50 MG, MANE
     Dates: end: 20130728
  13. PERHEXILINE [Suspect]
     Indication: ANGINA PECTORIS
     Dosage: `100 MG, BID
     Route: 048
     Dates: end: 201302
  14. ASPIRIN [Concomitant]
     Indication: CEREBROVASCULAR ACCIDENT
     Dosage: 100 MG, MANE
     Route: 048
  15. DILTIAZEM [Concomitant]
     Indication: ANGINA PECTORIS
     Dosage: 180 MG, BID
     Route: 048
  16. ATORVASTATIN [Concomitant]
     Indication: BLOOD CHOLESTEROL INCREASED
     Dosage: 20 MG, MANE
  17. METFORMIN [Concomitant]
     Indication: DIABETES MELLITUS
     Dosage: 1 G, TID
     Route: 048
  18. DULOXETINE [Concomitant]
     Indication: DEPRESSION
     Dosage: 60 MG, MANE
     Route: 048
  19. PERINDOPRIL [Concomitant]
     Indication: HYPERTENSION
     Dosage: 2.5 MG, MANE
     Route: 048
  20. ISOSORBIDE MONONITRATE [Concomitant]
     Indication: ANGINA PECTORIS
     Dosage: 10 MG, TID
     Dates: end: 201302
  21. RAMIPRIL [Concomitant]
     Dosage: 1.25 MG, MANE
     Route: 048
  22. BISOPROLOL [Concomitant]
     Dosage: 2.5 MG, MNAE
     Route: 048
  23. PANTOPRAZOL [Concomitant]
     Dosage: 40 MG, MANE
     Route: 048
  24. CHOLECALCIFEROL [Concomitant]
     Dosage: 25 UG, MANE
     Route: 048
  25. MAGNESIUM ASPARTATE [Concomitant]
     Dosage: 500 MG, TID
     Route: 048
  26. ASCORBIC ACID [Concomitant]
     Dosage: 500 MG, TID
     Route: 048
  27. CLOTRIMAZOLE [Concomitant]
     Dosage: 10 MG/G, BID
     Route: 061
  28. RISPERIDONE [Concomitant]
     Dosage: 3 MG, NOCTE
     Route: 048
  29. GLYCERYL TRINITRATE [Concomitant]
     Dosage: 1- PUFFS, PRN
     Route: 060
  30. PERINDOPRIL ARGININE [Concomitant]
     Dosage: 2.5 MG, QD
     Route: 048

REACTIONS (65)
  - Stress cardiomyopathy [Recovered/Resolved]
  - Cardiac failure [Recovering/Resolving]
  - Obstructive airways disorder [Not Recovered/Not Resolved]
  - Urinary tract infection [Unknown]
  - Hypokalaemia [Unknown]
  - Hypomagnesaemia [Unknown]
  - Regurgitation [Unknown]
  - Duodenal ulcer [Unknown]
  - Hypophagia [Recovered/Resolved]
  - Mobility decreased [Unknown]
  - Poor venous access [Unknown]
  - Alopecia [Unknown]
  - Hyperthyroidism [Unknown]
  - Vitamin C deficiency [Unknown]
  - Vitamin B complex deficiency [Unknown]
  - Cyanosis [Unknown]
  - Retching [Unknown]
  - Vitamin D deficiency [Unknown]
  - Cholelithiasis [Unknown]
  - Selenium deficiency [Unknown]
  - Bronchial secretion retention [Unknown]
  - Normochromic normocytic anaemia [Unknown]
  - Oxygen saturation decreased [Unknown]
  - Blood creatinine increased [Unknown]
  - C-reactive protein increased [Unknown]
  - Exercise tolerance decreased [Unknown]
  - Oedema peripheral [Unknown]
  - Hyponatraemia [Unknown]
  - Anaemia of chronic disease [Unknown]
  - Respiratory failure [Unknown]
  - Somnolence [Recovering/Resolving]
  - Angina pectoris [Unknown]
  - White blood cell count increased [Unknown]
  - Intestinal obstruction [Recovering/Resolving]
  - Malaise [Recovering/Resolving]
  - Vomiting [Recovered/Resolved]
  - Abdominal distension [Recovering/Resolving]
  - Convulsion [Recovered/Resolved]
  - Confusional state [Unknown]
  - Constipation [Recovering/Resolving]
  - Deep vein thrombosis [Unknown]
  - Pneumonia aspiration [Unknown]
  - Tardive dyskinesia [Unknown]
  - Agitation [Unknown]
  - Nausea [Unknown]
  - Dysphagia [Recovering/Resolving]
  - Tachycardia [Unknown]
  - Impaired gastric emptying [Recovering/Resolving]
  - Atrial fibrillation [Unknown]
  - Atrial flutter [Unknown]
  - Urinary retention [Unknown]
  - Non-cardiac chest pain [Unknown]
  - Lower respiratory tract infection [Unknown]
  - Decreased appetite [Unknown]
  - Cough [Unknown]
  - Dyspnoea [Unknown]
  - Pyrexia [Unknown]
  - Antipsychotic drug level above therapeutic [Unknown]
  - Abdominal discomfort [Unknown]
  - Fatigue [Unknown]
  - Toxicity to various agents [Unknown]
  - Blood uric acid increased [Unknown]
  - Gastrointestinal disorder [Unknown]
  - Weight decreased [Unknown]
  - Liver function test abnormal [Unknown]
